FAERS Safety Report 16872285 (Version 1)
Quarter: 2019Q4

REPORT INFORMATION
  Report Type: Spontaneous
  Country: AR (occurrence: AR)
  Receive Date: 20191001
  Receipt Date: 20191001
  Transmission Date: 20200122
  Serious: Yes (Other)
  Sender: FDA-Public Use
  Company Number: AR-TEVA-2019-AR-1115422

PATIENT
  Age: 46 Year
  Sex: Female

DRUGS (2)
  1. CARBOPLATIN. [Suspect]
     Active Substance: CARBOPLATIN
     Indication: MALIGNANT NEOPLASM OF THYMUS
     Dosage: EVERY 3 WEEKS FOR 4 CYCLES
     Route: 065
  2. PACLITAXEL. [Suspect]
     Active Substance: PACLITAXEL
     Indication: MALIGNANT NEOPLASM OF THYMUS
     Dosage: EVERY 3 WEEKS FOR 4 CYCLES
     Route: 065

REACTIONS (4)
  - Asthenia [Unknown]
  - Neutropenia [Unknown]
  - Alopecia [Unknown]
  - Thrombosis [Unknown]
